FAERS Safety Report 7374092-4 (Version None)
Quarter: 2011Q1

REPORT INFORMATION
  Report Type: 
  Country: None (occurrence: None)
  Receive Date: 20110325
  Receipt Date: 20100809
  Transmission Date: 20110831
  Serious: No
  Sender: FDA-Public Use
  Company Number: US-MYLANLABS-2010S1006235

PATIENT
  Sex: Female

DRUGS (4)
  1. ASPIRIN [Concomitant]
  2. MULTI-VITAMINS [Concomitant]
  3. LEVOTHYROXINE SODIUM [Concomitant]
  4. TAMOXIFEN CITRATE [Suspect]
     Indication: BREAST CANCER

REACTIONS (1)
  - SECRETION DISCHARGE [None]
